FAERS Safety Report 18205929 (Version 19)
Quarter: 2023Q1

REPORT INFORMATION
  Report Type: Report from Study
  Country: CN (occurrence: None)
  Receive Date: 20200828
  Receipt Date: 20230227
  Transmission Date: 20230418
  Serious: Yes (Death, Hospitalization)
  Sender: FDA-Public Use
  Company Number: CN-ROCHE-2664760

PATIENT
  Age: 69 Year
  Sex: Male
  Weight: 61 kg

DRUGS (31)
  1. ATEZOLIZUMAB [Suspect]
     Active Substance: ATEZOLIZUMAB
     Indication: Non-small cell lung cancer
     Dosage: ON 13/AUG/2020, HE HAD LAST DOSE OF ATEZOLIZUMAB PRIOR TO AE OR SAE ONSET.
     Route: 041
     Dates: start: 20200813
  2. CARBOPLATIN [Suspect]
     Active Substance: CARBOPLATIN
     Indication: Non-small cell lung cancer
     Dosage: 6 MG/ML/MIN?ON 13/AUG/2020, HE HAD HIS LAST DOSE OF CARBOPLATIN 800 MG PRIOR TO AE/SAE ONSET.
     Route: 042
     Dates: start: 20200813
  3. PEMETREXED [Suspect]
     Active Substance: PEMETREXED
     Indication: Non-small cell lung cancer
     Dosage: ON 13/AUG/2020, HE HAD HIS LAST DOSE OF PEMETREXED 850 MG PRIOR TO AE/SAE ONSET.
     Route: 042
     Dates: start: 20200813
  4. BEVACIZUMAB [Suspect]
     Active Substance: BEVACIZUMAB
     Indication: Non-small cell lung cancer
     Dosage: ON 13/AUG/2020 HE HAD HIS LAST DOSE OF BEVACIZUMAB 920 MG PRIOR TO AE/SAE ONSET.
     Route: 042
     Dates: start: 20200813
  5. SIMVASTATIN [Concomitant]
     Active Substance: SIMVASTATIN
     Indication: Coronary artery disease
     Dates: start: 2006, end: 20200823
  6. ISOSORBIDE MONONITRATE [Concomitant]
     Active Substance: ISOSORBIDE MONONITRATE
     Indication: Coronary artery disease
     Dates: start: 2006, end: 20200823
  7. ATENOLOL [Concomitant]
     Active Substance: ATENOLOL
     Indication: Coronary artery disease
     Dates: start: 2006, end: 20200823
  8. ASPIRIN [Concomitant]
     Active Substance: ASPIRIN
     Indication: Coronary artery disease
     Dosage: NO
     Dates: start: 2003, end: 20200823
  9. ASPIRIN [Concomitant]
     Active Substance: ASPIRIN
     Indication: Coronary artery disease
     Dates: start: 20200622, end: 20200727
  10. ASPIRIN [Concomitant]
     Active Substance: ASPIRIN
     Dates: start: 20200805, end: 20200823
  11. LOSARTAN POTASSIUM [Concomitant]
     Active Substance: LOSARTAN POTASSIUM
     Indication: Hypertension
     Dates: start: 2006, end: 20200823
  12. DILTIAZEM HYDROCHLORIDE [Concomitant]
     Active Substance: DILTIAZEM HYDROCHLORIDE
     Indication: Hypertension
     Dates: start: 2006, end: 20200823
  13. REBAMIPIDE [Concomitant]
     Active Substance: REBAMIPIDE
     Indication: Gastric ulcer
     Dates: start: 2020, end: 20200823
  14. SOLIFENACIN [Concomitant]
     Active Substance: SOLIFENACIN
     Indication: Oedema peripheral
     Dates: start: 202006, end: 20200811
  15. SOLIFENACIN [Concomitant]
     Active Substance: SOLIFENACIN
     Indication: Pain in extremity
  16. ACETAMINOPHEN\OXYCODONE HYDROCHLORIDE [Concomitant]
     Active Substance: ACETAMINOPHEN\OXYCODONE HYDROCHLORIDE
     Indication: Cancer pain
     Dates: start: 20200812, end: 20200823
  17. FOLIC ACID [Concomitant]
     Active Substance: FOLIC ACID
     Dates: start: 20200723, end: 20200823
  18. DEXAMETHASONE ACETATE [Concomitant]
     Active Substance: DEXAMETHASONE ACETATE
     Indication: Vomiting
     Dosage: TABLET
     Route: 048
     Dates: start: 20200812, end: 20200814
  19. OXYCODONE HYDROCHLORIDE [Concomitant]
     Active Substance: OXYCODONE HYDROCHLORIDE
     Indication: Cancer pain
     Dates: start: 20200813, end: 20200818
  20. LACTULOSE [Concomitant]
     Active Substance: LACTULOSE
     Indication: Constipation
     Route: 048
     Dates: start: 20200814, end: 20200818
  21. OXYCODONE AND ACETAMINOPHEN [Concomitant]
     Active Substance: ACETAMINOPHEN\OXYCODONE HYDROCHLORIDE
     Indication: Cancer pain
     Dates: start: 20200812, end: 20200813
  22. IBUPROFEN [Concomitant]
     Active Substance: IBUPROFEN
     Indication: Cancer pain
     Dates: start: 20200812, end: 20200812
  23. IBUPROFEN [Concomitant]
     Active Substance: IBUPROFEN
     Indication: Oedema peripheral
     Dosage: IBUPROFEN CODIENE SUSTAINED RELEASE
     Dates: start: 202006, end: 20200811
  24. MORPHINE HYDROCHLORIDE [Concomitant]
     Active Substance: MORPHINE HYDROCHLORIDE
     Indication: Cancer pain
     Dates: start: 20200812, end: 20200812
  25. GLYCERIN [Concomitant]
     Active Substance: GLYCERIN
     Indication: Constipation
     Dosage: ENEMA
     Dates: start: 20200814, end: 20200823
  26. TROPISETRON HYDROCHLORIDE [Concomitant]
     Active Substance: TROPISETRON HYDROCHLORIDE
     Indication: Vomiting
     Dates: start: 20200813, end: 20200813
  27. IPRATROPIUM BROMIDE [Concomitant]
     Active Substance: IPRATROPIUM BROMIDE
     Indication: Neoplasm
     Dates: start: 20200815, end: 20200815
  28. BUDESONIDE [Concomitant]
     Active Substance: BUDESONIDE
     Indication: Neoplasm
     Dates: start: 20200815, end: 20200815
  29. CYANOCOBALAMIN [Concomitant]
     Active Substance: CYANOCOBALAMIN
     Indication: Prophylaxis
     Dates: start: 20200813, end: 20200813
  30. LIDOCAINE [Concomitant]
     Active Substance: LIDOCAINE
     Dates: start: 20200730, end: 20200730
  31. OMEPRAZOLE [Concomitant]
     Active Substance: OMEPRAZOLE
     Indication: Gastric ulcer
     Dates: start: 202004, end: 20200823

REACTIONS (2)
  - Septic shock [Fatal]
  - Myelosuppression [Not Recovered/Not Resolved]

NARRATIVE: CASE EVENT DATE: 20200822
